FAERS Safety Report 23652781 (Version 1)
Quarter: 2024Q1

REPORT INFORMATION
  Report Type: Spontaneous
  Country: US (occurrence: US)
  Receive Date: 20240320
  Receipt Date: 20240320
  Transmission Date: 20240410
  Serious: No
  Sender: FDA-Public Use
  Company Number: US-AUROBINDO-AUR-APL-2023-053680

PATIENT
  Age: 86 Year
  Sex: Male
  Weight: 73 kg

DRUGS (2)
  1. GABAPENTIN [Suspect]
     Active Substance: GABAPENTIN
     Indication: Post-traumatic stress disorder
     Dosage: 1 DOSAGE FORM, FOUR TIMES/DAY ( 300MG IN THE MORNING, 300MG IN THE AFTERNOON, AND 600MG (2 CAPSULES)
     Route: 048
  2. TAGAMET [Concomitant]
     Active Substance: CIMETIDINE
     Indication: Abdominal discomfort
     Dosage: UNK
     Route: 065

REACTIONS (3)
  - Lacrimation increased [Not Recovered/Not Resolved]
  - Vision blurred [Not Recovered/Not Resolved]
  - Deposit eye [Not Recovered/Not Resolved]
